FAERS Safety Report 12249779 (Version 1)
Quarter: 2016Q2

REPORT INFORMATION
  Report Type: Report from Study
  Country: CA (occurrence: CA)
  Receive Date: 20160408
  Receipt Date: 20160408
  Transmission Date: 20160815
  Serious: Yes (Other)
  Sender: FDA-Public Use
  Company Number: PHHY2016CA045909

PATIENT
  Age: 46 Year
  Sex: Female

DRUGS (1)
  1. EXTAVIA [Suspect]
     Active Substance: INTERFERON BETA-1B
     Indication: SECONDARY PROGRESSIVE MULTIPLE SCLEROSIS
     Dosage: 8 MIU, QW3
     Route: 058
     Dates: start: 20110120, end: 201601

REACTIONS (1)
  - Ankle fracture [Unknown]

NARRATIVE: CASE EVENT DATE: 201601
